FAERS Safety Report 6781313-5 (Version None)
Quarter: 2010Q2

REPORT INFORMATION
  Report Type: 
  Country: None (occurrence: None)
  Receive Date: 20100621
  Receipt Date: 20100615
  Transmission Date: 20101027
  Serious: Yes (Death, Life-Threatening, Hospitalization)
  Sender: FDA-Public Use
  Company Number: PHHY2010DE39149

PATIENT
  Sex: Male

DRUGS (32)
  1. VOLTAREN [Suspect]
     Indication: PAIN
     Dosage: UNK
     Dates: start: 20071221, end: 20080103
  2. DICLOFENAC SODIUM [Suspect]
     Indication: PAIN
     Dosage: 70 MG, QD
     Route: 048
     Dates: start: 20041213, end: 20080103
  3. AVELOX [Suspect]
     Dosage: UNK,UNK
     Route: 048
  4. CEFUROXIME [Suspect]
     Indication: CHRONIC OBSTRUCTIVE PULMONARY DISEASE
     Dosage: 500 MG, BID
     Route: 048
     Dates: start: 20071222, end: 20071231
  5. CEFUROXIME [Suspect]
     Indication: SURGERY
     Dosage: UNK,UNK
     Route: 042
     Dates: start: 20080105, end: 20080110
  6. ERYTHROMYCIN [Suspect]
     Indication: CHRONIC OBSTRUCTIVE PULMONARY DISEASE
     Dosage: 500 MG, TID
     Dates: start: 20071223, end: 20071231
  7. DECORTIN [Concomitant]
     Indication: CHRONIC OBSTRUCTIVE PULMONARY DISEASE
     Dosage: UNK
     Route: 048
     Dates: start: 20041213, end: 20071220
  8. AMARYL [Concomitant]
     Indication: DIABETES MELLITUS
     Dosage: 1 MG, BID
     Route: 048
     Dates: start: 20041213, end: 20080103
  9. FORMOTEROL [Concomitant]
     Indication: CHRONIC OBSTRUCTIVE PULMONARY DISEASE
     Dosage: BID
     Dates: start: 20041213, end: 20080103
  10. BUDECORT [Concomitant]
     Indication: CHRONIC OBSTRUCTIVE PULMONARY DISEASE
     Dosage: BID
     Dates: start: 20041213, end: 20080103
  11. RAMIPRIL [Concomitant]
     Indication: CARDIOMYOPATHY
     Dosage: 0.5 DF, BID
     Dates: start: 20050101, end: 20080103
  12. BISOMERCK PLUS [Concomitant]
     Indication: CARDIOMYOPATHY
     Dosage: 0.5 DF, BID
     Route: 048
     Dates: start: 20050101, end: 20080103
  13. THEOPHYLLINE [Concomitant]
     Dosage: UNK
     Route: 048
     Dates: start: 20071214, end: 20071219
  14. ACETYLCYSTEINE [Concomitant]
     Indication: CHRONIC OBSTRUCTIVE PULMONARY DISEASE
     Dosage: 1 DF, QD
     Route: 042
     Dates: start: 20071221, end: 20071231
  15. LASIX [Concomitant]
     Indication: OEDEMA
     Dosage: 40 MG, BID
     Route: 042
     Dates: start: 20071221, end: 20071231
  16. CLEXANE [Concomitant]
     Indication: THROMBOSIS PROPHYLAXIS
     Dosage: 1-0-0
     Route: 058
     Dates: start: 20071221, end: 20080103
  17. SALBUTAMOL [Concomitant]
     Indication: CHRONIC OBSTRUCTIVE PULMONARY DISEASE
     Dosage: UNK
     Dates: start: 20071221, end: 20080103
  18. TOREM [Concomitant]
     Indication: CARDIOMYOPATHY
     Dosage: UNK
     Route: 048
     Dates: start: 20071221, end: 20080103
  19. CORNEREGEL [Concomitant]
     Indication: DRY EYE
     Dosage: 1-1-1-1-1
     Dates: start: 20071221, end: 20080103
  20. FRAXIPARIN [Concomitant]
     Indication: THROMBOSIS PROPHYLAXIS
     Dosage: UNK
     Route: 058
     Dates: start: 20080103, end: 20080103
  21. VIANI INHALAT FORT [Concomitant]
     Indication: CHRONIC OBSTRUCTIVE PULMONARY DISEASE
     Dosage: QD
     Dates: start: 20080103, end: 20080103
  22. POTASSIUM CHLORIDE [Concomitant]
     Indication: ELECTROLYTE SUBSTITUTION THERAPY
     Dosage: UNK
     Route: 042
     Dates: start: 20080104, end: 20080105
  23. AMIODARONE [Concomitant]
     Indication: CARDIOMYOPATHY
     Dosage: UNK
     Route: 042
     Dates: start: 20080104
  24. INSULIN [Concomitant]
     Indication: BLOOD INSULIN
     Dosage: UNK
     Route: 042
     Dates: start: 20080104
  25. TRANEXAMIC ACID [Concomitant]
     Dosage: UNK
     Route: 042
     Dates: start: 20080104
  26. ARTERENOL [Concomitant]
     Dosage: UNK
     Route: 042
     Dates: start: 20080104
  27. SUPRARENIN [Concomitant]
     Dosage: UNK
     Route: 042
     Dates: start: 20080104
  28. HEPARIN [Concomitant]
     Indication: THROMBOSIS PROPHYLAXIS
     Dosage: UNK
     Route: 042
     Dates: start: 20080104, end: 20080106
  29. PROPOFOL [Concomitant]
     Indication: NECROSIS
     Dosage: UNK
     Route: 042
     Dates: start: 20080104
  30. JONOSTERIL [Concomitant]
     Indication: ELECTROLYTE SUBSTITUTION THERAPY
     Dosage: UNK
     Route: 042
     Dates: start: 20080104
  31. MILRINONE [Concomitant]
     Indication: CARDIOMYOPATHY
     Route: 042
  32. FUROSEMIDE [Concomitant]
     Indication: POLYURIA
     Route: 042

REACTIONS (5)
  - BLISTER [None]
  - EPIDERMOLYSIS [None]
  - ERYTHEMA [None]
  - NIKOLSKY'S SIGN [None]
  - TOXIC EPIDERMAL NECROLYSIS [None]
